FAERS Safety Report 8424951-6 (Version None)
Quarter: 2012Q2

REPORT INFORMATION
  Report Type: 
  Country: None (occurrence: None)
  Receive Date: 20120611
  Receipt Date: 20120601
  Transmission Date: 20120825
  Serious: Yes (Other)
  Sender: FDA-Public Use
  Company Number: GB-UCBSA-058701

PATIENT
  Age: 58 Year
  Sex: Male

DRUGS (12)
  1. LAMOTRIGINE [Suspect]
     Route: 048
     Dates: start: 20120413, end: 20120522
  2. LANSOPRAZOLE [Concomitant]
  3. ALBUTEROL [Concomitant]
  4. SENNA-MINT WAF [Concomitant]
  5. ENALAPRIL MALEATE [Concomitant]
  6. KEPPRA [Suspect]
     Route: 048
     Dates: start: 20120406, end: 20120418
  7. ASPIRIN [Concomitant]
  8. LACTULOSE [Concomitant]
  9. METFORMIN HYDROCHLORIDE [Concomitant]
  10. ROSUVASTATIN [Concomitant]
  11. BECLOMETHASONE DIPROPIONATE [Concomitant]
  12. WARFARIN SODIUM [Concomitant]

REACTIONS (3)
  - HALLUCINATION [None]
  - LIVER FUNCTION TEST ABNORMAL [None]
  - DRUG RASH WITH EOSINOPHILIA AND SYSTEMIC SYMPTOMS [None]
